FAERS Safety Report 24247894 (Version 1)
Quarter: 2024Q3

REPORT INFORMATION
  Report Type: Spontaneous
  Country: BR (occurrence: BR)
  Receive Date: 20240826
  Receipt Date: 20240826
  Transmission Date: 20241016
  Serious: Yes (Death, Hospitalization)
  Sender: BOEHRINGER INGELHEIM
  Company Number: BR-Komodo Health-a23aa000002ioP6AAI

PATIENT
  Age: 82 Year
  Sex: Female

DRUGS (4)
  1. OLODATEROL HYDROCHLORIDE\TIOTROPIUM BROMIDE MONOHYDRATE [Suspect]
     Active Substance: OLODATEROL HYDROCHLORIDE\TIOTROPIUM BROMIDE MONOHYDRATE
     Indication: Emphysema
     Dosage: FORM STRENGTH: 2,5 MICROGRAMS +2,5 MICROGRAMS.?1 PUFF IN THE MORNING AND 1 PUFF IN THE EVENING, INHA
     Route: 055
  2. OLODATEROL HYDROCHLORIDE\TIOTROPIUM BROMIDE MONOHYDRATE [Suspect]
     Active Substance: OLODATEROL HYDROCHLORIDE\TIOTROPIUM BROMIDE MONOHYDRATE
     Dosage: FORM STRENGTH: 2,5 MICROGRAMS +2,5 MICROGRAMS.?SHE USED 3 PUFFS IN THE MORNING, WITH A SPACER AND MA
     Dates: start: 2023
  3. LOSARTAN [Suspect]
     Active Substance: LOSARTAN\LOSARTAN POTASSIUM
     Indication: Hypertension
     Dosage: 1 TABLET IN THE MORNING AND 1 TABLET IN THE EVENING
     Route: 048
  4. METOPROLOL [Concomitant]
     Active Substance: METOPROLOL
     Indication: Cardiac disorder
     Dosage: 1 TABLET IN THE MORNING AND 1 TABLET IN THE EVENING.
     Route: 048

REACTIONS (19)
  - Pneumonia [Fatal]
  - Haematemesis [Recovered/Resolved]
  - Thrombosis [Unknown]
  - Vomiting [Recovered/Resolved]
  - Thrombosis [Unknown]
  - Swelling [Unknown]
  - Peripheral swelling [Unknown]
  - Haematemesis [Unknown]
  - Extra dose administered [Recovered/Resolved]
  - Bedridden [Unknown]
  - Product use issue [Recovered/Resolved]
  - Asthenia [Unknown]
  - Decreased appetite [Unknown]
  - Malaise [Unknown]
  - Weight decreased [Unknown]
  - Cough [Unknown]
  - Influenza [Unknown]
  - Oxygen saturation decreased [Unknown]
  - Feeling abnormal [Unknown]

NARRATIVE: CASE EVENT DATE: 20220101
